FAERS Safety Report 5796769-4 (Version None)
Quarter: 2008Q3

REPORT INFORMATION
  Report Type: 
  Country: None (occurrence: None)
  Receive Date: 20080701
  Receipt Date: 20080619
  Transmission Date: 20090109
  Serious: Yes (Hospitalization, Disabling)
  Sender: FDA-Public Use
  Company Number: CH-ROCHE-556545

PATIENT
  Sex: Male
  Weight: 85 kg

DRUGS (2)
  1. PEGASYS [Suspect]
     Route: 058
     Dates: start: 20070606, end: 20071212
  2. RIBAVIRIN [Concomitant]
     Route: 048
     Dates: start: 20070701, end: 20071101

REACTIONS (1)
  - PARAPARESIS [None]
